FAERS Safety Report 23916570 (Version 1)
Quarter: 2024Q2

REPORT INFORMATION
  Report Type: Spontaneous
  Country: US (occurrence: None)
  Receive Date: 20240528
  Receipt Date: 20240528
  Transmission Date: 20240715
  Serious: Yes (Other)
  Sender: FDA-Public Use
  Company Number: None

PATIENT
  Sex: Male

DRUGS (10)
  1. TREMFYA [Suspect]
     Active Substance: GUSELKUMAB
     Indication: Psoriasis
     Dosage: 100 MG/ML EVERY 8 WEEKS SUBCUTANEOUS
     Route: 058
  2. LISINOPRIL [Concomitant]
     Active Substance: LISINOPRIL
  3. ACITRETIN [Suspect]
     Active Substance: ACITRETIN
  4. PEPCID [Concomitant]
     Active Substance: FAMOTIDINE
  5. EZETIMIBE [Concomitant]
     Active Substance: EZETIMIBE
  6. ASPIRIN [Concomitant]
     Active Substance: ASPIRIN
  7. VITAMINS [Concomitant]
     Active Substance: VITAMINS
  8. FEXOFENADINE [Concomitant]
     Active Substance: FEXOFENADINE HYDROCHLORIDE
  9. PRALUENT [Concomitant]
     Active Substance: ALIROCUMAB
  10. CETIRIZINE [Concomitant]
     Active Substance: CETIRIZINE HYDROCHLORIDE

REACTIONS (4)
  - Blister [None]
  - Secretion discharge [None]
  - Erythema [None]
  - Urticaria [None]
